FAERS Safety Report 18120572 (Version 1)
Quarter: 2020Q3

REPORT INFORMATION
  Report Type: Spontaneous
  Country: US (occurrence: US)
  Receive Date: 20200806
  Receipt Date: 20200806
  Transmission Date: 20201103
  Serious: Yes (Hospitalization, Other)
  Sender: FDA-Public Use
  Company Number: US-APOTEX-2020AP015032

PATIENT
  Age: 43 Year
  Sex: Male

DRUGS (8)
  1. LEVETIRACETAM. [Concomitant]
     Active Substance: LEVETIRACETAM
     Dosage: 4000 MILLIGRAM, QD
     Route: 065
  2. ZONISAMIDE. [Interacting]
     Active Substance: ZONISAMIDE
     Dosage: 600 MICROGRAM, QD
     Route: 065
  3. VALPROIC ACID. [Interacting]
     Active Substance: VALPROIC ACID
     Indication: SEIZURE
     Dosage: 1500 MILLIGRAM, QD
     Route: 065
  4. ZONISAMIDE. [Suspect]
     Active Substance: ZONISAMIDE
     Indication: SEIZURE
     Dosage: 50 MILLIGRAM, QD
     Route: 065
  5. LEVETIRACETAM. [Concomitant]
     Active Substance: LEVETIRACETAM
     Indication: SEIZURE
     Dosage: 2000 MILLIGRAM, BID (GRADUAL TITRATION SCHEDULE )
     Route: 065
  6. ZONISAMIDE. [Interacting]
     Active Substance: ZONISAMIDE
     Dosage: 350 MILLIGRAM, QD
     Route: 065
  7. ZONISAMIDE. [Interacting]
     Active Substance: ZONISAMIDE
     Dosage: 500 MILLIGRAM
     Route: 065
  8. VALPROIC ACID. [Interacting]
     Active Substance: VALPROIC ACID
     Dosage: 2000 MILLIGRAM, QD
     Route: 065

REACTIONS (4)
  - Hyperammonaemic encephalopathy [Recovering/Resolving]
  - Drug interaction [Unknown]
  - Weight decreased [Recovering/Resolving]
  - Weight increased [Unknown]
